FAERS Safety Report 12048489 (Version 1)
Quarter: 2016Q1

REPORT INFORMATION
  Report Type: Spontaneous
  Country: US (occurrence: US)
  Receive Date: 20160209
  Receipt Date: 20160209
  Transmission Date: 20160526
  Serious: No
  Sender: FDA-Public Use
  Company Number: US-009507513-1602USA004191

PATIENT
  Age: 32 Year
  Sex: Female

DRUGS (1)
  1. BELSOMRA [Suspect]
     Active Substance: SUVOREXANT
     Dosage: 10 MG, ONCE DAILY
     Route: 048
     Dates: start: 20160204, end: 20160205

REACTIONS (5)
  - Goitre [Unknown]
  - Choking sensation [Unknown]
  - Middle insomnia [Unknown]
  - Pharyngeal oedema [Unknown]
  - Expired product administered [Unknown]

NARRATIVE: CASE EVENT DATE: 20160204
